FAERS Safety Report 7271718-0 (Version None)
Quarter: 2011Q1

REPORT INFORMATION
  Report Type: 
  Country: None (occurrence: None)
  Receive Date: 20110203
  Receipt Date: 20110126
  Transmission Date: 20110831
  Serious: Yes (Hospitalization, Other)
  Sender: FDA-Public Use
  Company Number: US-ABBOTT-10P-163-0678741-00

PATIENT
  Sex: Female
  Weight: 58.112 kg

DRUGS (9)
  1. PREDNISONE [Concomitant]
     Indication: PRODUCT USED FOR UNKNOWN INDICATION
     Dosage: 40 MG DAILY - TAPERING DOSE
     Route: 048
  2. STEROIDS [Concomitant]
     Indication: PRODUCT USED FOR UNKNOWN INDICATION
     Dates: start: 20100818
  3. HUMIRA [Suspect]
     Indication: CROHN'S DISEASE
     Dates: start: 20101006
  4. SIMETHICONE [Concomitant]
     Indication: FLATULENCE
     Dosage: OTC - AS NEEDED
  5. LORAZEPAM [Concomitant]
     Indication: PRODUCT USED FOR UNKNOWN INDICATION
     Dosage: 1MG THREE TIMES A DAY AS NEEDED
     Route: 048
  6. PRILOSEC [Concomitant]
     Indication: PRODUCT USED FOR UNKNOWN INDICATION
     Dosage: DAILY  - OTC
  7. OXYCODONE HCL AND ACETAMINOPHEN [Concomitant]
     Indication: PRODUCT USED FOR UNKNOWN INDICATION
     Dosage: 7.5/325 MG EVERY SIX HOURS AS NEEDED
     Route: 048
  8. LORTAB [Concomitant]
     Indication: PRODUCT USED FOR UNKNOWN INDICATION
  9. ZOFRAN [Concomitant]
     Indication: PRODUCT USED FOR UNKNOWN INDICATION
     Dosage: 4 MG EVERY SIX TO EIGHT HOURS AS NEEDED
     Route: 048

REACTIONS (10)
  - DIARRHOEA HAEMORRHAGIC [None]
  - CROHN'S DISEASE [None]
  - ANAL FISTULA [None]
  - INCORRECT DOSE ADMINISTERED [None]
  - GASTROINTESTINAL INFECTION [None]
  - DEHYDRATION [None]
  - FATIGUE [None]
  - PYREXIA [None]
  - NAUSEA [None]
  - PANIC ATTACK [None]
